FAERS Safety Report 9280684 (Version 1)
Quarter: 2013Q2

REPORT INFORMATION
  Report Type: Spontaneous
  Country: US (occurrence: US)
  Receive Date: 20130509
  Receipt Date: 20130509
  Transmission Date: 20140414
  Serious: Yes (Other)
  Sender: FDA-Public Use
  Company Number: US-PFIZER INC-2013143390

PATIENT
  Sex: Female

DRUGS (2)
  1. LYRICA [Suspect]
     Indication: HERPES ZOSTER
     Dosage: UNK
  2. LYRICA [Suspect]
     Indication: POST HERPETIC NEURALGIA

REACTIONS (1)
  - Road traffic accident [Unknown]
